FAERS Safety Report 5690726-4 (Version None)
Quarter: 2008Q2

REPORT INFORMATION
  Report Type: 
  Country: None (occurrence: None)
  Receive Date: 20080401
  Receipt Date: 20080320
  Transmission Date: 20081010
  Serious: No
  Sender: FDA-Public Use
  Company Number: US-ELI_LILLY_AND_COMPANY-US200801006113

PATIENT
  Sex: Female
  Weight: 90.703 kg

DRUGS (5)
  1. CYMBALTA [Suspect]
     Indication: MAJOR DEPRESSION
     Dosage: 60 MG, DAILY (1/D)
  2. AMBIEN [Concomitant]
     Indication: INSOMNIA
     Dosage: 10 MG, EACH EVENING
  3. XANAX [Concomitant]
     Indication: ANXIETY
     Dosage: 1 MG, 3/D
  4. ANTI-DIABETICS [Concomitant]
  5. OTHER ANTIHYPERTENSIVES [Concomitant]

REACTIONS (1)
  - HEPATIC ENZYME INCREASED [None]
